FAERS Safety Report 8425633-7 (Version None)
Quarter: 2012Q2

REPORT INFORMATION
  Report Type: 
  Country: None (occurrence: None)
  Receive Date: 20120611
  Receipt Date: 20120605
  Transmission Date: 20120825
  Serious: Yes (Hospitalization, Other)
  Sender: FDA-Public Use
  Company Number: PHHY2012CA001474

PATIENT
  Sex: Male
  Weight: 55 kg

DRUGS (1)
  1. SANDOSTATIN LAR [Suspect]
     Indication: PANCREATIC CARCINOMA
     Dosage: 30 MG, EVERY 4 WEEKS
     Route: 030
     Dates: start: 20111110

REACTIONS (9)
  - DEHYDRATION [None]
  - FALL [None]
  - VOMITING [None]
  - JAUNDICE [None]
  - NAUSEA [None]
  - DIARRHOEA [None]
  - ASTHENIA [None]
  - DEVICE OCCLUSION [None]
  - WEIGHT DECREASED [None]
